FAERS Safety Report 8901457 (Version 1)
Quarter: 2012Q4

REPORT INFORMATION
  Report Type: Report from Study
  Country: GB (occurrence: GB)
  Receive Date: 20121108
  Receipt Date: 20121108
  Transmission Date: 20130627
  Serious: Yes (Life-Threatening, Hospitalization)
  Sender: FDA-Public Use
  Company Number: GB-TEVA-368718ISR

PATIENT
  Age: 58 Year
  Sex: Female
  Weight: 59.6 kg

DRUGS (10)
  1. FOLIC ACID [Suspect]
     Route: 048
     Dates: start: 20100404, end: 20110712
  2. TOCILIZUMAB [Suspect]
     Dates: start: 20100430
  3. TOCILIZUMAB [Suspect]
     Dates: start: 20110401
  4. TOCILIZUMAB [Suspect]
     Dates: start: 20110503
  5. TOCILIZUMAB [Suspect]
     Dates: start: 20110603
  6. TOCILIZUMAB [Suspect]
     Dates: start: 20110701
  7. METHOTREXATE [Suspect]
     Dosage: 1.0714 Milligram Daily;
     Dates: start: 20100401, end: 20110709
  8. NAPROXEN [Concomitant]
     Dosage: 1 Gram Daily;
     Dates: start: 200911
  9. PARACETAMOL [Concomitant]
     Dates: start: 201003
  10. ATORVASTATIN [Concomitant]
     Dosage: 80 Milligram Daily;
     Dates: start: 20110713

REACTIONS (1)
  - Myocardial infarction [Recovered/Resolved with Sequelae]
